FAERS Safety Report 16822527 (Version 3)
Quarter: 2019Q3

REPORT INFORMATION
  Report Type: Spontaneous
  Country: FR (occurrence: FR)
  Receive Date: 20190918
  Receipt Date: 20190919
  Transmission Date: 20191005
  Serious: Yes (Hospitalization)
  Sender: FDA-Public Use
  Company Number: FR-PFIZER INC-2019396725

PATIENT
  Age: 55 Year
  Sex: Male
  Weight: 45 kg

DRUGS (3)
  1. REMSIMA [Suspect]
     Active Substance: INFLIXIMAB
     Indication: SPONDYLOARTHROPATHY
     Dosage: 5 MG/KG, 8 WK
     Route: 042
     Dates: start: 20170622, end: 20181127
  2. REMICADE [Suspect]
     Active Substance: INFLIXIMAB
     Indication: SPONDYLOARTHROPATHY
     Dosage: 5 MG/KG, 8 WK
     Route: 042
     Dates: start: 20050101, end: 20170424
  3. METHOTREXATE SODIUM. [Suspect]
     Active Substance: METHOTREXATE SODIUM
     Indication: SPONDYLOARTHROPATHY
     Dosage: 15 MG, WEEKLY
     Route: 048
     Dates: start: 2007, end: 201309

REACTIONS (2)
  - Off label use [Unknown]
  - Bladder cancer [Recovered/Resolved]

NARRATIVE: CASE EVENT DATE: 20170622
